FAERS Safety Report 19231957 (Version 1)
Quarter: 2021Q2

REPORT INFORMATION
  Report Type: Spontaneous
  Country: US (occurrence: US)
  Receive Date: 20210507
  Receipt Date: 20210507
  Transmission Date: 20210717
  Serious: No
  Sender: FDA-Public Use
  Company Number: US-NEURELIS, INC.-2021NEU000040

PATIENT
  Sex: Male

DRUGS (2)
  1. VALTOCO [Suspect]
     Active Substance: DIAZEPAM
     Indication: SEIZURE CLUSTER
     Dosage: UNK
     Route: 065
  2. DIASTAT                            /00017001/ [Concomitant]
     Indication: SEIZURE CLUSTER
     Dosage: UNK
     Route: 054

REACTIONS (1)
  - Drug ineffective [Unknown]
